FAERS Safety Report 8449224-7 (Version None)
Quarter: 2012Q2

REPORT INFORMATION
  Report Type: 
  Country: None (occurrence: None)
  Receive Date: 20120613
  Receipt Date: 20120613
  Transmission Date: 20120825
  Serious: Yes (Hospitalization)
  Sender: FDA-Public Use
  Company Number: None

PATIENT
  Age: 58 Year
  Sex: Male
  Weight: 69.7 kg

DRUGS (1)
  1. OXYCODONE HCL [Suspect]

REACTIONS (1)
  - MENTAL STATUS CHANGES [None]
